FAERS Safety Report 18950697 (Version 1)
Quarter: 2021Q1

REPORT INFORMATION
  Report Type: Spontaneous
  Country: US (occurrence: US)
  Receive Date: 20210228
  Receipt Date: 20210228
  Transmission Date: 20210420
  Serious: No
  Sender: FDA-Public Use
  Company Number: US-ROCHE-2732880

PATIENT
  Sex: Female

DRUGS (1)
  1. XOLAIR [Suspect]
     Active Substance: OMALIZUMAB
     Indication: ASTHMA
     Route: 058
     Dates: start: 20200620

REACTIONS (5)
  - Dysgeusia [Not Recovered/Not Resolved]
  - Headache [Unknown]
  - Pain [Unknown]
  - Alopecia [Unknown]
  - Fatigue [Unknown]
